FAERS Safety Report 10742681 (Version 1)
Quarter: 2015Q1

REPORT INFORMATION
  Report Type: Spontaneous
  Country: US (occurrence: US)
  Receive Date: 20150127
  Receipt Date: 20150127
  Transmission Date: 20150721
  Serious: No
  Sender: FDA-Public Use
  Company Number: US-PFIZER INC-2015023501

PATIENT
  Sex: Female

DRUGS (1)
  1. DUAVEE [Suspect]
     Active Substance: BAZEDOXIFENE ACETATE\ESTROGENS, CONJUGATED
     Dosage: 0.45 MG/20 MG, DAILY
     Dates: end: 201412

REACTIONS (3)
  - Nausea [Unknown]
  - Feeling abnormal [Unknown]
  - Malaise [Unknown]
